FAERS Safety Report 9300459 (Version 2)
Quarter: 2013Q3

REPORT INFORMATION
  Report Type: Report from Study
  Country: PL (occurrence: PL)
  Receive Date: 20130521
  Receipt Date: 20130912
  Transmission Date: 20140515
  Serious: Yes (Hospitalization)
  Sender: FDA-Public Use
  Company Number: PL-ASTELLAS-2013US000413

PATIENT
  Age: 1 Year
  Sex: Male
  Weight: 11 kg

DRUGS (5)
  1. TACROLIMUS OINTMENT [Suspect]
     Indication: DERMATITIS ATOPIC
     Dosage: 0.03 %, WEEKLY
     Route: 061
     Dates: start: 20120119
  2. TACROLIMUS OINTMENT [Suspect]
     Dosage: 0.03 %, ONCE A DAY, TWICE WEEKLY
     Dates: start: 20120509
  3. AERIUS                             /01398501/ [Concomitant]
     Indication: DERMATITIS ATOPIC
     Dosage: 2.5 ML, UID/QD
     Route: 048
     Dates: start: 20120801
  4. LOCOID [Concomitant]
     Indication: DERMATITIS ATOPIC
     Dosage: UNK
     Route: 061
  5. BEBILON PEPTI [Concomitant]
     Indication: PRODUCT USED FOR UNKNOWN INDICATION
     Dosage: UNK
     Route: 065

REACTIONS (5)
  - Off label use [Unknown]
  - Pneumonia respiratory syncytial viral [Unknown]
  - Bronchitis [Unknown]
  - Asthma [Unknown]
  - Respiratory syncytial virus bronchitis [Recovered/Resolved]
